FAERS Safety Report 7681078-9 (Version None)
Quarter: 2011Q3

REPORT INFORMATION
  Report Type: 
  Country: None (occurrence: None)
  Receive Date: 20110812
  Receipt Date: 20110811
  Transmission Date: 20111222
  Serious: No
  Sender: FDA-Public Use
  Company Number: US-PFIZER INC-2011185547

PATIENT
  Sex: Female
  Weight: 49.887 kg

DRUGS (4)
  1. GEODON [Suspect]
     Indication: DEVELOPMENTAL DELAY
  2. VALPROIC ACID [Concomitant]
     Dosage: UNK
  3. ADVAIR DISKUS 100/50 [Concomitant]
     Indication: ASTHMA
     Dosage: UNK
  4. GEODON [Suspect]
     Indication: BIPOLAR DISORDER
     Dosage: 40 MG, 1X/DAY
     Route: 048
     Dates: start: 20110807, end: 20110811

REACTIONS (3)
  - PAIN IN EXTREMITY [None]
  - SOMNOLENCE [None]
  - DIZZINESS [None]
